FAERS Safety Report 5913382-6 (Version None)
Quarter: 2008Q4

REPORT INFORMATION
  Report Type: 
  Country: None (occurrence: None)
  Receive Date: 20081009
  Receipt Date: 20081001
  Transmission Date: 20090506
  Serious: Yes (Other)
  Sender: FDA-Public Use
  Company Number: PHHY2008ES23172

PATIENT
  Age: 39 Year
  Sex: Female

DRUGS (1)
  1. FLUVASTATIN SODIUM [Suspect]
     Indication: HYPERCHOLESTEROLAEMIA
     Dosage: 80 MG
     Route: 048
     Dates: start: 20080423, end: 20080428

REACTIONS (5)
  - INSOMNIA [None]
  - MUSCLE SPASMS [None]
  - MUSCULAR WEAKNESS [None]
  - OEDEMA [None]
  - RASH [None]
